FAERS Safety Report 25982255 (Version 2)
Quarter: 2025Q4

REPORT INFORMATION
  Report Type: Spontaneous
  Country: JP (occurrence: JP)
  Receive Date: 20251031
  Receipt Date: 20251202
  Transmission Date: 20260118
  Serious: Yes (Other)
  Sender: REGENERON
  Company Number: JP-REGENERON PHARMACEUTICALS, INC.-2025-170517

PATIENT
  Age: 66 Year
  Sex: Female

DRUGS (1)
  1. LIBTAYO [Suspect]
     Active Substance: CEMIPLIMAB-RWLC
     Indication: Cervix carcinoma recurrent
     Dosage: 350 MG
     Route: 041

REACTIONS (1)
  - Disease progression [Unknown]
